FAERS Safety Report 6028249-5 (Version None)
Quarter: 2008Q4

REPORT INFORMATION
  Report Type: 
  Country: None (occurrence: None)
  Receive Date: 20081231
  Receipt Date: 20081231
  Transmission Date: 20090506
  Serious: Yes (Hospitalization)
  Sender: FDA-Public Use
  Company Number: None

PATIENT
  Sex: Female
  Weight: 59 kg

DRUGS (6)
  1. FLUOROURACIL [Suspect]
     Dosage: 3628.4 MG
     Dates: end: 20081215
  2. BEVACIZUMAB (RHUMAB VEGF) [Suspect]
     Dosage: 305 MG
     Dates: end: 20081215
  3. LEUCOVORIN CALCIUM [Suspect]
     Dosage: 648 MG
     Dates: end: 20081215
  4. ELOXATIN [Suspect]
     Dosage: 109.2 MG
     Dates: end: 20080206
  5. HYDROCODONE [Concomitant]
  6. LORAZEPAM [Concomitant]

REACTIONS (3)
  - ADVERSE EVENT [None]
  - NAUSEA [None]
  - VOMITING [None]
